FAERS Safety Report 7086789-4 (Version None)
Quarter: 2010Q4

REPORT INFORMATION
  Report Type: 
  Country: None (occurrence: None)
  Receive Date: 20101105
  Receipt Date: 20101025
  Transmission Date: 20110411
  Serious: Yes (Hospitalization)
  Sender: FDA-Public Use
  Company Number: NL-WATSON-2010-14121

PATIENT
  Age: 28 Year
  Sex: Male

DRUGS (2)
  1. METOPROLOL SUCCINATE [Suspect]
     Indication: SINUS TACHYCARDIA
     Dosage: UNK
     Route: 065
  2. AMITRIPTYLINE HCL [Suspect]
     Indication: NEURALGIA
     Dosage: UNK
     Route: 065

REACTIONS (1)
  - DRUG RASH WITH EOSINOPHILIA AND SYSTEMIC SYMPTOMS [None]
